FAERS Safety Report 5054716-7 (Version None)
Quarter: 2006Q3

REPORT INFORMATION
  Report Type: 
  Country: None (occurrence: None)
  Receive Date: 20060719
  Receipt Date: 20051227
  Transmission Date: 20061208
  Serious: Yes (Life-Threatening, Hospitalization, Disabling)
  Sender: FDA-Public Use
  Company Number: JP-BRISTOL-MYERS SQUIBB COMPANY-13235569

PATIENT
  Age: 56 Year
  Sex: Male

DRUGS (5)
  1. EFAVIRENZ [Suspect]
     Indication: HIV INFECTION
     Route: 048
     Dates: start: 20051221, end: 20051226
  2. TENOFOVIR DISOPROXIL FUMARATE [Suspect]
     Indication: HIV INFECTION
     Route: 048
     Dates: start: 20051221, end: 20051230
  3. DIFLUCAN [Concomitant]
     Dates: start: 20051212, end: 20051230
  4. EPIVIR [Concomitant]
     Dates: start: 20051221, end: 20051230
  5. BAKTAR [Concomitant]
     Dates: start: 20051214, end: 20060106

REACTIONS (5)
  - ANOREXIA [None]
  - APATHY [None]
  - DEHYDRATION [None]
  - DEPRESSED LEVEL OF CONSCIOUSNESS [None]
  - RENAL FAILURE ACUTE [None]
